FAERS Safety Report 13007675 (Version 1)
Quarter: 2016Q4

REPORT INFORMATION
  Report Type: Spontaneous
  Country: US (occurrence: US)
  Receive Date: 20161207
  Receipt Date: 20161207
  Transmission Date: 20170207
  Serious: No
  Sender: FDA-Public Use
  Company Number: US-BIOGEN-2016BI00321194

PATIENT
  Age: 53 Year
  Sex: Female
  Weight: 45.4 kg

DRUGS (1)
  1. ZINBRYTA [Suspect]
     Active Substance: DACLIZUMAB
     Indication: PRODUCT USED FOR UNKNOWN INDICATION
     Route: 058
     Dates: start: 20161026

REACTIONS (3)
  - Pain [Recovered/Resolved]
  - Dizziness [Recovered/Resolved]
  - Adverse reaction [Recovered/Resolved]

NARRATIVE: CASE EVENT DATE: 20161026
